FAERS Safety Report 6868115-6 (Version None)
Quarter: 2010Q3

REPORT INFORMATION
  Report Type: 
  Country: None (occurrence: None)
  Receive Date: 20100722
  Receipt Date: 20080513
  Transmission Date: 20110219
  Serious: No
  Sender: FDA-Public Use
  Company Number: US-PFIZER INC-2008043705

PATIENT
  Sex: Male
  Weight: 90.72 kg

DRUGS (3)
  1. CHANTIX [Suspect]
     Indication: SMOKING CESSATION THERAPY
     Dates: start: 20080301, end: 20080501
  2. FLUOCINONIDE [Suspect]
     Indication: ARTHROPOD BITE
     Dosage: UNIT DOSE 0.05%
     Route: 061
     Dates: end: 20080501
  3. DRUG, UNSPECIFIED [Concomitant]

REACTIONS (2)
  - RASH [None]
  - SCRATCH [None]
